FAERS Safety Report 5931293-7 (Version None)
Quarter: 2008Q4

REPORT INFORMATION
  Report Type: 
  Country: None (occurrence: None)
  Receive Date: 20081024
  Receipt Date: 20081024
  Transmission Date: 20090506
  Serious: Yes (Hospitalization)
  Sender: FDA-Public Use
  Company Number: None

PATIENT
  Sex: Female
  Weight: 63.7 kg

DRUGS (3)
  1. FLUOROURACIL [Suspect]
     Dosage: 24540 MG
  2. CISPLATIN [Suspect]
     Dosage: 460 MG
  3. ERBITUX [Suspect]
     Dosage: 1815 MG

REACTIONS (8)
  - ABDOMINAL PAIN [None]
  - DIARRHOEA [None]
  - DIZZINESS [None]
  - FATIGUE [None]
  - NAUSEA [None]
  - OCCULT BLOOD POSITIVE [None]
  - RADIATION SKIN INJURY [None]
  - WOUND [None]
